FAERS Safety Report 5498048-1 (Version None)
Quarter: 2007Q4

REPORT INFORMATION
  Report Type: 
  Country: None (occurrence: None)
  Receive Date: 20071025
  Receipt Date: 20071015
  Transmission Date: 20080405
  Serious: Yes (Life-Threatening, Hospitalization)
  Sender: FDA-Public Use
  Company Number: ES-PFIZER INC-2007085869

PATIENT
  Age: 41 Year
  Sex: Male

DRUGS (2)
  1. FLUCONAZOLE [Suspect]
     Indication: ORAL CANDIDIASIS
     Dosage: DAILY DOSE:100MG
     Route: 048
     Dates: start: 20060803, end: 20060817
  2. SEPTRIN [Suspect]
     Indication: PNEUMONIA
     Route: 048

REACTIONS (1)
  - PANCYTOPENIA [None]
